FAERS Safety Report 4826532-X (Version None)
Quarter: 2005Q4

REPORT INFORMATION
  Report Type: 
  Country: None (occurrence: None)
  Receive Date: 20051111
  Receipt Date: 20050830
  Transmission Date: 20060501
  Serious: Yes (Disabling, Other)
  Sender: FDA-Public Use
  Company Number: US-MERCK-0508USA04710

PATIENT
  Age: 65 Year
  Sex: Female
  Weight: 70 kg

DRUGS (2)
  1. ZETIA [Suspect]
     Indication: BLOOD CHOLESTEROL INCREASED
     Route: 048
     Dates: start: 20050501, end: 20050801
  2. [THERAPY UNSPECIFIED] [Concomitant]
     Route: 065

REACTIONS (6)
  - ALOPECIA [None]
  - BLINDNESS [None]
  - EFFUSION [None]
  - NERVOUS SYSTEM DISORDER [None]
  - RETINAL VEIN OCCLUSION [None]
  - VISUAL DISTURBANCE [None]
